FAERS Safety Report 8179848-6 (Version None)
Quarter: 2012Q1

REPORT INFORMATION
  Report Type: 
  Country: None (occurrence: None)
  Receive Date: 20120229
  Receipt Date: 20120229
  Transmission Date: 20120608
  Serious: Yes (Hospitalization)
  Sender: FDA-Public Use
  Company Number: None

PATIENT
  Sex: Female
  Weight: 75.8 kg

DRUGS (2)
  1. CARBOPLATIN [Suspect]
     Dosage: 190 MG
     Dates: end: 20110712
  2. TAXOL [Suspect]
     Dosage: 80 MG
     Dates: end: 20110712

REACTIONS (6)
  - CHEST PAIN [None]
  - TACHYCARDIA [None]
  - OESOPHAGITIS [None]
  - NEUTROPHIL COUNT DECREASED [None]
  - VENTRICULAR EXTRASYSTOLES [None]
  - OESOPHAGEAL ULCER [None]
